FAERS Safety Report 4303614-2 (Version None)
Quarter: 2004Q1

REPORT INFORMATION
  Report Type: 
  Country: None (occurrence: None)
  Receive Date: 20040225
  Receipt Date: 20040122
  Transmission Date: 20041129
  Serious: Yes (Disabling)
  Sender: FDA-Public Use
  Company Number: US-BRISTOL-MYERS SQUIBB COMPANY-12485546

PATIENT
  Age: 81 Year
  Sex: Male
  Weight: 63 kg

DRUGS (12)
  1. ABILIFY [Suspect]
     Indication: DEPRESSION
     Dosage: DOSE LOWERED ON 25-FEB-2004, THEN DISCONTINUED
     Route: 048
     Dates: start: 20040121, end: 20040128
  2. ABILIFY [Suspect]
     Indication: MOOD SWINGS
     Dosage: DOSE LOWERED ON 25-FEB-2004, THEN DISCONTINUED
     Route: 048
     Dates: start: 20040121, end: 20040128
  3. LEVOXYL [Concomitant]
  4. MYSOLINE [Concomitant]
  5. ASPIRIN [Concomitant]
  6. BEXTRA [Concomitant]
  7. RISPERDAL [Concomitant]
  8. PLETAL [Concomitant]
  9. ZONEGRAN [Concomitant]
  10. ALTACE [Concomitant]
  11. CHLOR-TRIMETON [Concomitant]
  12. PEPCID [Concomitant]

REACTIONS (3)
  - INSOMNIA [None]
  - MANIA [None]
  - PENILE PAIN [None]
